FAERS Safety Report 5257036-0 (Version None)
Quarter: 2007Q1

REPORT INFORMATION
  Report Type: 
  Country: None (occurrence: None)
  Receive Date: 20070307
  Receipt Date: 20070220
  Transmission Date: 20070707
  Serious: Yes (Other)
  Sender: FDA-Public Use
  Company Number: PHBS2007BE03163

PATIENT
  Sex: Female

DRUGS (3)
  1. TEGRETOL [Suspect]
     Indication: TRIGEMINAL NEURALGIA
     Dosage: 200 MG, QD
     Route: 048
     Dates: start: 20070130
  2. TEGRETOL [Suspect]
     Dosage: 200 MG, BID
     Route: 048
  3. TEGRETOL [Suspect]
     Dosage: 200 MG, TID
     Route: 048
     Dates: start: 20070205

REACTIONS (11)
  - ABASIA [None]
  - ARTHRALGIA [None]
  - FEELING COLD [None]
  - FEELING HOT [None]
  - HYPOAESTHESIA [None]
  - MICTURITION URGENCY [None]
  - MYALGIA [None]
  - NAUSEA [None]
  - PARALYSIS [None]
  - URTICARIA [None]
  - VISION BLURRED [None]
